FAERS Safety Report 4454586-1 (Version None)
Quarter: 2004Q3

REPORT INFORMATION
  Report Type: 
  Country: None (occurrence: None)
  Receive Date: 20040920
  Receipt Date: 20040920
  Transmission Date: 20050211
  Serious: Yes (Hospitalization)
  Sender: FDA-Public Use
  Company Number: None

PATIENT
  Age: 7 Year
  Sex: Male
  Weight: 35.8 kg

DRUGS (5)
  1. INFLIXIMAB  5MG/ KG  Q 6 WKS  (182 DAY) [Suspect]
     Dosage: 5MG/KG  Q6WKS (182MG)
  2. PREDNISONE [Concomitant]
  3. NAPROSYN [Concomitant]
  4. M.V.I. [Concomitant]
  5. CALCIUM SUPPLEMENTS [Concomitant]

REACTIONS (4)
  - BLOOD PRESSURE INCREASED [None]
  - CHEST DISCOMFORT [None]
  - INFUSION RELATED REACTION [None]
  - URTICARIA [None]
